FAERS Safety Report 5786108-7 (Version None)
Quarter: 2008Q2

REPORT INFORMATION
  Report Type: 
  Country: None (occurrence: None)
  Receive Date: 20080624
  Receipt Date: 20080609
  Transmission Date: 20081010
  Serious: Yes (Other)
  Sender: FDA-Public Use
  Company Number: PHEH2007US10488

PATIENT
  Sex: Female

DRUGS (4)
  1. ESTRADERM [Suspect]
     Indication: MENOPAUSE
     Route: 062
  2. VIVELLE [Suspect]
     Indication: MENOPAUSE
     Route: 062
  3. VIVELLE-DOT [Suspect]
     Indication: MENOPAUSE
     Route: 062
  4. PREMARIN [Suspect]

REACTIONS (29)
  - ADENOMYOSIS [None]
  - APPENDICECTOMY [None]
  - BILIARY COLIC [None]
  - BLADDER REPAIR [None]
  - BLOOD THYROID STIMULATING HORMONE INCREASED [None]
  - BREAST CANCER [None]
  - BREAST MASS [None]
  - BREAST TENDERNESS [None]
  - CHOLECYSTECTOMY [None]
  - CHOLECYSTITIS [None]
  - CHOLELITHIASIS [None]
  - DYSURIA [None]
  - ENDOMETRIOSIS [None]
  - GALLBLADDER DISORDER [None]
  - GASTROINTESTINAL DISORDER [None]
  - GOITRE [None]
  - HYPOAESTHESIA [None]
  - HYPOTHYROIDISM [None]
  - HYSTERECTOMY [None]
  - LYMPHADENOPATHY [None]
  - LYMPHOEDEMA [None]
  - MASTECTOMY [None]
  - MICTURITION URGENCY [None]
  - RHEUMATOID ARTHRITIS [None]
  - SALPINGO-OOPHORECTOMY [None]
  - SURGERY [None]
  - TONSILLECTOMY [None]
  - TONSILLITIS [None]
  - URINARY TRACT INFECTION [None]
